FAERS Safety Report 19061651 (Version 1)
Quarter: 2021Q1

REPORT INFORMATION
  Report Type: Spontaneous
  Country: US (occurrence: US)
  Receive Date: 20210325
  Receipt Date: 20210325
  Transmission Date: 20210420
  Serious: Yes (Death, Life-Threatening, Hospitalization, Other)
  Sender: FDA-Public Use
  Company Number: None

PATIENT
  Age: 72 Year
  Sex: Male
  Weight: 80 kg

DRUGS (22)
  1. DEFIBROTIDE SODIUM. [Suspect]
     Active Substance: DEFIBROTIDE SODIUM
     Indication: VENOOCCLUSIVE DISEASE
     Dosage: ?          OTHER FREQUENCY:Q6H FOR 5 DAYS;?
     Route: 041
     Dates: start: 20210312, end: 20210317
  2. DEXTROSE10% 125?250MLIVQ30MINPRN [Concomitant]
  3. NOREPINEPHRINE 0?3 MCG/KG/MINIVCONTINOUS [Concomitant]
  4. INSULIN REGULAR 1?15 UNITSIV Q30MIN PRN [Concomitant]
  5. ACETAMINOPHEN 650MGNGQ6HPRN [Concomitant]
  6. ACYCLOVIR 200MG IV Q12H [Concomitant]
  7. INSULIN REGULAR 1 UNITS/HRIVCONTINOUS [Concomitant]
  8. PHENYLEPHRINE  0?9 MCG/KG/MINIVCONTINOUS [Concomitant]
  9. DAPTOMYCIN 1,000 MG IV Q12H [Concomitant]
  10. FENTANYL 12.5 MCG IV Q5MIN PRN [Concomitant]
  11. GLUCAGON 1MG IM PRN [Concomitant]
  12. EPINEPHRINE0?0.5 MCG/KG/MINIV CONTINOUS [Concomitant]
  13. SOLUCORTEF 50MG IV Q6H [Concomitant]
  14. SODIUMBICARBONATE 150MEQ IVCONTINOUS [Concomitant]
  15. PANTOPRAZOLE 40MG IV Q12H [Concomitant]
  16. PROPOFOL 0?50 MCG/KG/MINIVCONTINOUS [Concomitant]
  17. VASOPRESSIN 0.1 UNITS/MINIVCONTINOUS [Concomitant]
  18. MORPHINE 8MG PO Q4H PRN [Concomitant]
  19. AMIODARONE 0.5 MG/MIN IV CONTINOUS [Concomitant]
  20. CHLORHEXIDINE 15ML PO Q12H [Concomitant]
  21. FENTANYL 0?300 MCG/HRIV CONTINOUS [Concomitant]
  22. POSACONAZOLE 300MG IV QD [Concomitant]

REACTIONS (5)
  - Hypotension [None]
  - Bradycardia [None]
  - Geotrichum infection [None]
  - Septic shock [None]
  - Acidosis [None]

NARRATIVE: CASE EVENT DATE: 20210324
